FAERS Safety Report 5867535-6 (Version None)
Quarter: 2008Q3

REPORT INFORMATION
  Report Type: 
  Country: None (occurrence: None)
  Receive Date: 20080902
  Receipt Date: 20070823
  Transmission Date: 20090109
  Serious: No
  Sender: FDA-Public Use
  Company Number: US-ABBOTT-07P-163-0415276-00

PATIENT
  Sex: Female
  Weight: 65.83 kg

DRUGS (3)
  1. DEPAKOTE ER [Suspect]
     Indication: BIPOLAR DISORDER
     Route: 048
     Dates: start: 19970101
  2. PAROXETINE HCL [Concomitant]
     Indication: BIPOLAR DISORDER
     Route: 048
  3. TRAZODONE HCL [Concomitant]
     Indication: BIPOLAR DISORDER

REACTIONS (1)
  - MEDICATION RESIDUE [None]
